FAERS Safety Report 23896660 (Version 1)
Quarter: 2024Q2

REPORT INFORMATION
  Report Type: Spontaneous
  Country: US (occurrence: US)
  Receive Date: 20240524
  Receipt Date: 20240524
  Transmission Date: 20240716
  Serious: Yes (Other)
  Sender: FDA-Public Use
  Company Number: US-HALEON-2175334

PATIENT
  Sex: Male

DRUGS (1)
  1. TUMS [Suspect]
     Active Substance: CALCIUM CARBONATE
     Indication: Product used for unknown indication

REACTIONS (1)
  - Injury [Unknown]
